FAERS Safety Report 23767214 (Version 2)
Quarter: 2024Q4

REPORT INFORMATION
  Report Type: Spontaneous
  Country: US (occurrence: US)
  Receive Date: 20240422
  Receipt Date: 20241015
  Transmission Date: 20250114
  Serious: No
  Sender: DR REDDYS
  Company Number: US-E2BLSMVVAL-SPO/USA/24/0005567

PATIENT
  Age: 89 Year
  Sex: Female

DRUGS (1)
  1. CLONIDINE [Suspect]
     Active Substance: CLONIDINE
     Indication: Hypertension
     Route: 062

REACTIONS (2)
  - Product adhesion issue [Unknown]
  - Poor quality product administered [Unknown]
